FAERS Safety Report 14562277 (Version 1)
Quarter: 2018Q1

REPORT INFORMATION
  Report Type: Spontaneous
  Country: US (occurrence: US)
  Receive Date: 20180222
  Receipt Date: 20180222
  Transmission Date: 20180509
  Serious: Yes (Other)
  Sender: FDA-Public Use
  Company Number: US-VIIV HEALTHCARE LIMITED-US2017GSK019571

PATIENT
  Age: 21 Year
  Sex: Male
  Weight: 56.69 kg

DRUGS (2)
  1. TIVICAY [Suspect]
     Active Substance: DOLUTEGRAVIR SODIUM
     Indication: HIV INFECTION
     Dosage: 50 MG, 1D
     Dates: start: 20160526, end: 20160607
  2. PREZCOBIX [Suspect]
     Active Substance: COBICISTAT\DARUNAVIR ETHANOLATE
     Indication: HIV INFECTION
     Dosage: UNK UNK, 1D
     Dates: start: 20160526, end: 20160607

REACTIONS (5)
  - Rash [Recovered/Resolved]
  - Papule [Unknown]
  - Stevens-Johnson syndrome [Recovered/Resolved]
  - Erythema [Unknown]
  - Mouth haemorrhage [Unknown]

NARRATIVE: CASE EVENT DATE: 20160605
